FAERS Safety Report 5356823-8 (Version None)
Quarter: 2007Q2

REPORT INFORMATION
  Report Type: 
  Country: None (occurrence: None)
  Receive Date: 20070614
  Receipt Date: 20070205
  Transmission Date: 20071010
  Serious: No
  Sender: FDA-Public Use
  Company Number: US-ASTRAZENECA-2007UW02487

PATIENT
  Sex: Male

DRUGS (4)
  1. ATACAND [Suspect]
  2. COZAAR [Concomitant]
  3. GLUCOTROL [Concomitant]
  4. BENICAR [Concomitant]

REACTIONS (1)
  - ILL-DEFINED DISORDER [None]
